FAERS Safety Report 15057427 (Version 1)
Quarter: 2018Q2

REPORT INFORMATION
  Report Type: Spontaneous
  Country: GB (occurrence: GB)
  Receive Date: 20180625
  Receipt Date: 20180625
  Transmission Date: 20180711
  Serious: Yes (Hospitalization)
  Sender: FDA-Public Use
  Company Number: GB-ACCORD-068573

PATIENT
  Age: 74 Year
  Sex: Female

DRUGS (12)
  1. BISOPROLOL [Concomitant]
     Active Substance: BISOPROLOL
  2. LORAZEPAM. [Concomitant]
     Active Substance: LORAZEPAM
  3. LACTULOSE. [Concomitant]
     Active Substance: LACTULOSE
  4. OMEPRAZOLE. [Suspect]
     Active Substance: OMEPRAZOLE
     Indication: PRODUCT USED FOR UNKNOWN INDICATION
  5. PARACETAMOL [Concomitant]
     Active Substance: ACETAMINOPHEN
  6. ORAMORPH [Concomitant]
     Active Substance: MORPHINE SULFATE
  7. AMITRIPTYLINE [Suspect]
     Active Substance: AMITRIPTYLINE
     Indication: PRODUCT USED FOR UNKNOWN INDICATION
     Route: 048
  8. WARFARIN [Concomitant]
     Active Substance: WARFARIN
  9. METOCLOPRAMIDE. [Concomitant]
     Active Substance: METOCLOPRAMIDE
  10. RAMIPRIL. [Concomitant]
     Active Substance: RAMIPRIL
  11. GABAPENTIN. [Concomitant]
     Active Substance: GABAPENTIN
  12. OXYCODONE/OXYCODONE HYDROCHLORIDE/OXYCODONE PECTINATE/OXYCODONE TEREPHTHALATE [Concomitant]

REACTIONS (1)
  - Fracture [Recovering/Resolving]
